FAERS Safety Report 4334765-4 (Version None)
Quarter: 2004Q2

REPORT INFORMATION
  Report Type: 
  Country: None (occurrence: None)
  Receive Date: 20040405
  Receipt Date: 20040329
  Transmission Date: 20050107
  Serious: No
  Sender: FDA-Public Use
  Company Number: TPA2004A00254

PATIENT
  Age: 76 Year
  Sex: Female
  Weight: 74.3899 kg

DRUGS (18)
  1. ACTOS [Suspect]
     Indication: DIABETES MELLITUS NON-INSULIN-DEPENDENT
     Dosage: 30 MG, 1 IN 1 D, PER ORAL
     Route: 048
     Dates: start: 20011002, end: 20040323
  2. DIABINESE [Concomitant]
  3. UNKNOWN STATIN (ALL OTHER THERAPEUTIC PRODUCTS) [Concomitant]
  4. B12 (CYACOBALAMIN) [Concomitant]
  5. LIPOIC ACID (THIOCTIC ACID) [Concomitant]
  6. MULTIVITAMIN [Concomitant]
  7. ACETYLSALICYLIC ACID SRT [Concomitant]
  8. PLAVIX [Concomitant]
  9. ACTONEL [Concomitant]
  10. LISINOPRIL [Concomitant]
  11. TIAZAC [Concomitant]
  12. HYDROCHLOROTHIAZIDE [Concomitant]
  13. ATENOLOL [Concomitant]
  14. FOLIC ACID [Concomitant]
  15. VITAMIN C(ASCORBIC ACID) [Concomitant]
  16. METFORMIN HCL [Concomitant]
  17. CALCIUM (CALCIUM) [Concomitant]
  18. AVANDIA [Concomitant]

REACTIONS (1)
  - MACULAR OEDEMA [None]
